FAERS Safety Report 14540083 (Version 2)
Quarter: 2018Q1

REPORT INFORMATION
  Report Type: Report from Study
  Country: DE (occurrence: DE)
  Receive Date: 20180216
  Receipt Date: 20180223
  Transmission Date: 20180509
  Serious: Yes (Death, Hospitalization)
  Sender: FDA-Public Use
  Company Number: DE-B.I. PHARMACEUTICALS,INC./RIDGEFIELD-2018-BI-008345

PATIENT
  Age: 67 Year
  Sex: Female
  Weight: 68 kg

DRUGS (1)
  1. AFATINIB [Suspect]
     Active Substance: AFATINIB
     Indication: NON-SMALL CELL LUNG CANCER
     Route: 065
     Dates: start: 20170906, end: 20171018

REACTIONS (5)
  - Rash [Recovering/Resolving]
  - Diarrhoea [Recovering/Resolving]
  - Pneumonia [Fatal]
  - Weight decreased [Not Recovered/Not Resolved]
  - Nasal inflammation [Recovering/Resolving]

NARRATIVE: CASE EVENT DATE: 20170912
